FAERS Safety Report 8200881-X (Version None)
Quarter: 2012Q1

REPORT INFORMATION
  Report Type: 
  Country: None (occurrence: None)
  Receive Date: 20120308
  Receipt Date: 20120227
  Transmission Date: 20120608
  Serious: Yes (Hospitalization, Other)
  Sender: FDA-Public Use
  Company Number: 2012MA002634

PATIENT
  Age: 84 Year
  Sex: Male

DRUGS (5)
  1. INDAPAMIDE [Suspect]
     Indication: HYPERTENSION
     Dosage: 1 MG;QD;PO
     Route: 048
     Dates: start: 20070101
  2. FAMOTIDINE [Concomitant]
  3. ROSUVASTATIN [Concomitant]
  4. BENIDIPINE [Concomitant]
  5. EPITHANATE-G [Concomitant]

REACTIONS (15)
  - ATRIOVENTRICULAR BLOCK [None]
  - RESPIRATORY ARREST [None]
  - HYPONATRAEMIA [None]
  - SUPRAVENTRICULAR EXTRASYSTOLES [None]
  - VENTRICULAR EXTRASYSTOLES [None]
  - NASOPHARYNGITIS [None]
  - HYPOKALAEMIA [None]
  - RENAL FAILURE [None]
  - CARDIOPULMONARY FAILURE [None]
  - BUNDLE BRANCH BLOCK RIGHT [None]
  - VENTRICULAR FLUTTER [None]
  - RHABDOMYOLYSIS [None]
  - DEHYDRATION [None]
  - DECREASED APPETITE [None]
  - METABOLIC ALKALOSIS [None]
